FAERS Safety Report 15365114 (Version 2)
Quarter: 2018Q4

REPORT INFORMATION
  Report Type: Spontaneous
  Country: US (occurrence: US)
  Receive Date: 20180910
  Receipt Date: 20181002
  Transmission Date: 20190204
  Serious: Yes (Other)
  Sender: FDA-Public Use
  Company Number: US-009507513-1809USA001810

PATIENT
  Age: 64 Year
  Sex: Female

DRUGS (3)
  1. IMATINIB MESYLATE. [Concomitant]
     Active Substance: IMATINIB MESYLATE
     Indication: INTRAOCULAR MELANOMA
     Dosage: UNK
  2. IPILIMUMAB [Suspect]
     Active Substance: IPILIMUMAB
     Indication: INTRAOCULAR MELANOMA
     Dosage: UNK
  3. KEYTRUDA [Suspect]
     Active Substance: PEMBROLIZUMAB
     Indication: INTRAOCULAR MELANOMA
     Dosage: UNK

REACTIONS (5)
  - Vitiligo [Unknown]
  - Autoimmune colitis [Unknown]
  - Autoimmune hypothyroidism [Unknown]
  - Type 1 diabetes mellitus [Unknown]
  - Immune-mediated adverse reaction [Unknown]
